FAERS Safety Report 6675117-1 (Version None)
Quarter: 2010Q2

REPORT INFORMATION
  Report Type: 
  Country: None (occurrence: None)
  Receive Date: 20100409
  Receipt Date: 20100405
  Transmission Date: 20101027
  Serious: Yes (Death, Hospitalization)
  Sender: FDA-Public Use
  Company Number: BR-GILEAD-2010-0028310

PATIENT
  Sex: Male

DRUGS (5)
  1. VIREAD [Suspect]
     Indication: HIV INFECTION
     Dates: start: 20080301
  2. TELZIR [Concomitant]
     Indication: HIV INFECTION
     Dates: start: 20080901
  3. LOPINAVIR [Concomitant]
     Indication: HIV INFECTION
     Dates: start: 20080301, end: 20080901
  4. LAMIVUDINE [Concomitant]
     Indication: HIV INFECTION
     Dates: start: 19960101
  5. RITONAVIR [Concomitant]
     Indication: HIV INFECTION
     Dates: start: 20080301

REACTIONS (4)
  - BLOOD TRIGLYCERIDES INCREASED [None]
  - CARDIOPULMONARY FAILURE [None]
  - DIARRHOEA [None]
  - MYOCARDIAL INFARCTION [None]
